FAERS Safety Report 6120252-X (Version None)
Quarter: 2009Q1

REPORT INFORMATION
  Report Type: 
  Country: None (occurrence: None)
  Receive Date: 20090312
  Receipt Date: 20090216
  Transmission Date: 20090719
  Serious: Yes (Other)
  Sender: FDA-Public Use
  Company Number: CHPA2009US04461

PATIENT
  Age: 76 Year
  Sex: 0
  Weight: 83.9 kg

DRUGS (3)
  1. VOLTAREN [Suspect]
     Indication: ARTHRALGIA
     Dosage: 4 G, TID, TOPICAL
     Route: 061
     Dates: start: 20090101, end: 20090201
  2. VOLTAREN [Suspect]
     Indication: OSTEOARTHRITIS
     Dosage: 4 G, TID, TOPICAL
     Route: 061
     Dates: start: 20090101, end: 20090201
  3. SOTALOL HCL [Concomitant]

REACTIONS (3)
  - APPLICATION SITE DERMATITIS [None]
  - DYSPNOEA [None]
  - TACHYCARDIA [None]
